FAERS Safety Report 9307720 (Version 1)
Quarter: 2013Q2

REPORT INFORMATION
  Report Type: Report from Study
  Country: US (occurrence: US)
  Receive Date: 20130524
  Receipt Date: 20130524
  Transmission Date: 20140414
  Serious: Yes (Other)
  Sender: FDA-Public Use
  Company Number: US-BAYER-2013-062530

PATIENT
  Age: 74 Year
  Sex: Female

DRUGS (4)
  1. STIVARGA [Suspect]
     Indication: COLON CANCER
     Dosage: 80 MG, 2 TABLETS DAILY
     Route: 048
     Dates: start: 20130501, end: 20130502
  2. STIVARGA [Suspect]
     Indication: COLON CANCER
     Dosage: 80 MG, 2 TABLETS DAILY
     Route: 048
     Dates: start: 20130508, end: 20130510
  3. STIVARGA [Suspect]
     Indication: COLON CANCER
     Dosage: 120 MG, 3 TABLETS DAILY
     Route: 048
     Dates: start: 20130511, end: 20130513
  4. STIVARGA [Suspect]
     Indication: COLON CANCER
     Dosage: 160 MG, 4 TABLETS DAILY
     Route: 048
     Dates: start: 20130514

REACTIONS (2)
  - Blood magnesium decreased [None]
  - Chest pain [Recovered/Resolved]
